FAERS Safety Report 8469610 (Version 3)
Quarter: 2014Q1

REPORT INFORMATION
  Report Type: Report from Study
  Country: HU (occurrence: HU)
  Receive Date: 20120321
  Receipt Date: 20140319
  Transmission Date: 20141002
  Serious: Yes (Other)
  Sender: FDA-Public Use
  Company Number: HU-UCBSA-053489

PATIENT
  Age: 58 Year
  Sex: Female
  Weight: 114 kg

DRUGS (4)
  1. CIMZIA [Suspect]
     Indication: RHEUMATOID ARTHRITIS
     Route: 058
     Dates: start: 20110811, end: 20110908
  2. CIMZIA [Suspect]
     Indication: RHEUMATOID ARTHRITIS
     Route: 058
     Dates: start: 20110630, end: 20110728
  3. DIPROSALIC [Concomitant]
     Indication: PSORIASIS
     Route: 062
  4. ELOSALIC [Concomitant]
     Route: 062

REACTIONS (1)
  - Psoriasis [Not Recovered/Not Resolved]
